FAERS Safety Report 5584906-6 (Version None)
Quarter: 2008Q1

REPORT INFORMATION
  Report Type: 
  Country: None (occurrence: None)
  Receive Date: 20080104
  Receipt Date: 20071231
  Transmission Date: 20080703
  Serious: Yes (Hospitalization)
  Sender: FDA-Public Use
  Company Number: 2007SP024062

PATIENT
  Age: 75 Year
  Sex: Male
  Weight: 66.5 kg

DRUGS (3)
  1. TEMODAR [Suspect]
     Indication: GLIOBLASTOMA MULTIFORME
     Dosage: 130 MG; QD; PO
     Route: 048
     Dates: start: 20071101, end: 20071120
  2. DILANTIN [Concomitant]
  3. FAMOTIDINE [Concomitant]

REACTIONS (2)
  - FATIGUE [None]
  - IDIOPATHIC THROMBOCYTOPENIC PURPURA [None]
